FAERS Safety Report 7227631-8 (Version None)
Quarter: 2011Q1

REPORT INFORMATION
  Report Type: 
  Country: None (occurrence: None)
  Receive Date: 20110114
  Receipt Date: 20110112
  Transmission Date: 20110831
  Serious: No
  Sender: FDA-Public Use
  Company Number: US-PFIZER INC-2011008279

PATIENT
  Sex: Male
  Weight: 97.506 kg

DRUGS (1)
  1. LYRICA [Suspect]
     Indication: PAIN
     Dosage: 25 MG, DAILY
     Route: 048
     Dates: start: 20090101

REACTIONS (1)
  - WEIGHT INCREASED [None]
